FAERS Safety Report 20430754 (Version 1)
Quarter: 2022Q1

REPORT INFORMATION
  Report Type: Report from Study
  Country: FR (occurrence: FR)
  Receive Date: 20220204
  Receipt Date: 20220204
  Transmission Date: 20220423
  Serious: Yes (Hospitalization)
  Sender: FDA-Public Use
  Company Number: FR-SERVIER-S21004071

PATIENT

DRUGS (5)
  1. PEGASPARGASE [Suspect]
     Active Substance: PEGASPARGASE
     Indication: Acute lymphocytic leukaemia
     Dosage: 1400 IU, QD ON D12
     Route: 042
     Dates: start: 20210122, end: 20210122
  2. TN UNSPECIFIED [Concomitant]
     Indication: Acute lymphocytic leukaemia
     Dosage: 0.8 MG ON D8, D15, D22, AND D29
     Route: 042
     Dates: start: 20210118, end: 20210208
  3. TN UNSPECIFIED [Concomitant]
     Indication: Acute lymphocytic leukaemia
     Dosage: 8 MG ON D1, D9, D13, AND D24 (DELAYED)
     Route: 037
     Dates: start: 20210111, end: 20210208
  4. TN UNSPECIFIED [Concomitant]
     Indication: Acute lymphocytic leukaemia
     Dosage: 3.5 MG ON D8 TO D28
     Route: 048
     Dates: start: 20210118, end: 20210207
  5. TN UNSPECIFIED [Concomitant]
     Indication: Acute lymphocytic leukaemia
     Dosage: 34 MG ON D1 TO D7
     Route: 042
     Dates: start: 20210111, end: 20210117

REACTIONS (1)
  - Pyelonephritis [Recovered/Resolved]

NARRATIVE: CASE EVENT DATE: 20210211
